FAERS Safety Report 4759247-7 (Version None)
Quarter: 2005Q3

REPORT INFORMATION
  Report Type: 
  Country: None (occurrence: None)
  Receive Date: 20050831
  Receipt Date: 20050816
  Transmission Date: 20060218
  Serious: Yes (Hospitalization)
  Sender: FDA-Public Use
  Company Number: EWC050745052

PATIENT
  Age: 82 Year
  Sex: Female

DRUGS (7)
  1. EVISTA [Suspect]
     Indication: OSTEOPOROSIS
     Dosage: 60 MG/1
     Dates: start: 20010101
  2. COZAAR [Concomitant]
  3. ASPIRIN [Concomitant]
  4. NORMORIX [Concomitant]
  5. CALCICHEW D3 [Concomitant]
  6. VITAMINERAL [Concomitant]
  7. INOLAXOL (STERCULIA URENS) [Concomitant]

REACTIONS (2)
  - MIGRAINE [None]
  - VOMITING [None]
